FAERS Safety Report 7059772-2 (Version None)
Quarter: 2010Q4

REPORT INFORMATION
  Report Type: 
  Country: None (occurrence: None)
  Receive Date: 20101025
  Receipt Date: 20101014
  Transmission Date: 20110411
  Serious: Yes (Other)
  Sender: FDA-Public Use
  Company Number: JP-PFIZER INC-2010119912

PATIENT

DRUGS (2)
  1. AZULFIDINE [Suspect]
     Indication: RHEUMATOID ARTHRITIS
     Dosage: 500MG/DAY
     Route: 048
     Dates: start: 20100730, end: 20100817
  2. AZULFIDINE [Suspect]
     Dosage: 1000MG/DAY
     Route: 048
     Dates: start: 20100818, end: 20100828

REACTIONS (2)
  - AGRANULOCYTOSIS [None]
  - BACTERIAL INFECTION [None]
